FAERS Safety Report 5596950-3 (Version None)
Quarter: 2007Q4

REPORT INFORMATION
  Report Type: 
  Country: None (occurrence: None)
  Receive Date: 20071220
  Receipt Date: 20070808
  Transmission Date: 20080405
  Serious: Yes (Other)
  Sender: FDA-Public Use
  Company Number: ENTC2007-0233

PATIENT
  Sex: Female

DRUGS (2)
  1. STALEVO 100 [Suspect]
     Dosage: ORAL 600 MG, 4 IN 1 D, ORAL
     Route: 048
     Dates: start: 20050101, end: 20070101
  2. STALEVO 100 [Suspect]
     Dosage: ORAL 600 MG, 4 IN 1 D, ORAL
     Route: 048
     Dates: start: 20070101

REACTIONS (3)
  - ABNORMAL DREAMS [None]
  - DYSPNOEA [None]
  - HALLUCINATION [None]
